FAERS Safety Report 10677289 (Version 2)
Quarter: 2014Q4

REPORT INFORMATION
  Report Type: Report from Study
  Country: JP (occurrence: JP)
  Receive Date: 20141226
  Receipt Date: 20141226
  Transmission Date: 20150529
  Serious: Yes (Hospitalization, Other)
  Sender: FDA-Public Use
  Company Number: JP-009507513-1412JPN002166

PATIENT
  Age: 66 Year
  Sex: Male
  Weight: 55 kg

DRUGS (6)
  1. PEGINTRON [Suspect]
     Active Substance: PEGINTERFERON ALFA-2B
     Indication: HEPATIC CIRRHOSIS
     Dosage: 60 MICROGRAM, QW
     Route: 058
     Dates: start: 20121109, end: 20130716
  2. REBETOL [Suspect]
     Active Substance: RIBAVIRIN
     Indication: HEPATIC CIRRHOSIS
     Dosage: 600 MG, QD
     Route: 048
     Dates: start: 20121109, end: 20130705
  3. REBETOL [Suspect]
     Active Substance: RIBAVIRIN
     Dosage: 400 MG, QD
     Route: 048
     Dates: start: 20130706, end: 20140410
  4. PEGINTRON [Suspect]
     Active Substance: PEGINTERFERON ALFA-2B
     Dosage: 30 MICROGRAM, QW
     Route: 058
     Dates: start: 20130717, end: 20130725
  5. PEGINTRON [Suspect]
     Active Substance: PEGINTERFERON ALFA-2B
     Dosage: 50 MICROGRAM, QW
     Route: 058
     Dates: start: 20130726, end: 20131117
  6. PEGINTRON [Suspect]
     Active Substance: PEGINTERFERON ALFA-2B
     Dosage: 50 MICROGRAM, QW
     Route: 058
     Dates: start: 20131206, end: 20140410

REACTIONS (15)
  - Platelet count decreased [Not Recovered/Not Resolved]
  - Alanine aminotransferase increased [Recovered/Resolved]
  - Protein induced by vitamin K absence or antagonist II increased [Recovered/Resolved]
  - Pruritus [Recovered/Resolved]
  - Granulocyte count decreased [Recovered/Resolved]
  - Neutrophil count decreased [Recovered/Resolved]
  - Aspartate aminotransferase increased [Recovered/Resolved]
  - Protein induced by vitamin K absence or antagonist II increased [Recovered/Resolved]
  - White blood cell count decreased [Not Recovered/Not Resolved]
  - Pneumonia bacterial [Recovered/Resolved]
  - Blood albumin decreased [Recovered/Resolved]
  - Anaemia [Recovered/Resolved]
  - Gamma-glutamyltransferase increased [Recovered/Resolved]
  - Hepatic cancer [Not Recovered/Not Resolved]
  - C-reactive protein increased [Recovered/Resolved]

NARRATIVE: CASE EVENT DATE: 2012
